FAERS Safety Report 9793365 (Version 2)
Quarter: 2014Q1

REPORT INFORMATION
  Report Type: Spontaneous
  Country: US (occurrence: US)
  Receive Date: 20140102
  Receipt Date: 20140205
  Transmission Date: 20141002
  Serious: Yes (Hospitalization)
  Sender: FDA-Public Use
  Company Number: US-PFIZER INC-2013374396

PATIENT
  Age: 43 Year
  Sex: Male
  Weight: 86.17 kg

DRUGS (4)
  1. LYRICA [Suspect]
     Indication: PARAESTHESIA
     Dosage: 75 MG, 3X/DAY
     Route: 048
  2. LYRICA [Suspect]
     Indication: FORMICATION
  3. LYRICA [Suspect]
     Indication: POST PROCEDURAL COMPLICATION
  4. NEURONTIN [Concomitant]
     Dosage: UNK

REACTIONS (2)
  - Off label use [Unknown]
  - Autoimmune disorder [Unknown]
